FAERS Safety Report 10174461 (Version 2)
Quarter: 2014Q2

REPORT INFORMATION
  Report Type: Spontaneous
  Country: US (occurrence: None)
  Receive Date: 20140416
  Receipt Date: 20140604
  Transmission Date: 20141212
  Serious: Yes (Hospitalization)
  Sender: FDA-Public Use
  Company Number: 163-POMAL-13121056

PATIENT
  Age: 74 Year
  Sex: Male

DRUGS (3)
  1. POMALYST [Suspect]
     Indication: PLASMA CELL MYELOMA
     Route: 048
     Dates: start: 201310, end: 2013
  2. DANAZOL (DANAZOL) (UNKNOWN) [Concomitant]
  3. DECADRON (DEXAMETHSONE) [Concomitant]

REACTIONS (1)
  - Pneumonia [None]
